FAERS Safety Report 6213438-7 (Version None)
Quarter: 2009Q2

REPORT INFORMATION
  Report Type: 
  Country: None (occurrence: None)
  Receive Date: 20090601
  Receipt Date: 20090519
  Transmission Date: 20091009
  Serious: Yes (Hospitalization)
  Sender: FDA-Public Use
  Company Number: A-CH2009-24536

PATIENT
  Age: 34 Year
  Sex: Female
  Weight: 53 kg

DRUGS (3)
  1. TRACLEER [Suspect]
     Indication: SKIN ULCER
     Dosage: 62.5 MG, BID, ORAL
     Route: 048
     Dates: start: 20080918, end: 20081007
  2. TRACLEER [Suspect]
     Indication: SKIN ULCER
     Dosage: 62.5 MG, BID, ORAL
     Route: 048
     Dates: start: 20081021, end: 20090218
  3. PREDNISOLONE [Concomitant]

REACTIONS (12)
  - ARTHRALGIA [None]
  - BACK PAIN [None]
  - BLOOD HOMOCYSTEINE INCREASED [None]
  - CAVERNOUS SINUS THROMBOSIS [None]
  - CEREBRAL VENOUS THROMBOSIS [None]
  - COAGULATION FACTOR VIII LEVEL INCREASED [None]
  - CYTOMEGALOVIRUS ANTIBODY POSITIVE [None]
  - DIZZINESS [None]
  - EPSTEIN-BARR VIRUS ANTIBODY POSITIVE [None]
  - HEADACHE [None]
  - NO THERAPEUTIC RESPONSE [None]
  - PARAESTHESIA [None]
